FAERS Safety Report 18728595 (Version 2)
Quarter: 2021Q1

REPORT INFORMATION
  Report Type: Spontaneous
  Country: US (occurrence: US)
  Receive Date: 20210112
  Receipt Date: 20210317
  Transmission Date: 20210419
  Serious: Yes (Life-Threatening, Hospitalization)
  Sender: FDA-Public Use
  Company Number: US-TEVA-2020-US-1865285

PATIENT
  Age: 55 Year
  Sex: Male

DRUGS (2)
  1. PREDNISONE. [Suspect]
     Active Substance: PREDNISONE
     Indication: MYELITIS TRANSVERSE
     Dosage: HIGH DOSE
     Route: 065
  2. INFLECTRA [Suspect]
     Active Substance: INFLIXIMAB-DYYB
     Indication: CROHN^S DISEASE
     Route: 065

REACTIONS (4)
  - Respiratory muscle weakness [Unknown]
  - Myelitis transverse [Not Recovered/Not Resolved]
  - Paraplegia [Not Recovered/Not Resolved]
  - Drug ineffective [Unknown]
